FAERS Safety Report 22132649 (Version 1)
Quarter: 2023Q1

REPORT INFORMATION
  Report Type: Spontaneous
  Country: US (occurrence: US)
  Receive Date: 20230323
  Receipt Date: 20230323
  Transmission Date: 20230418
  Serious: Yes (Other)
  Sender: FDA-Public Use
  Company Number: US-TEVA-2023-US-2867999

PATIENT
  Sex: Female

DRUGS (1)
  1. DICLOXACILLIN SODIUM [Suspect]
     Active Substance: DICLOXACILLIN SODIUM
     Indication: Product used for unknown indication
     Route: 065

REACTIONS (1)
  - Coeliac disease [Unknown]
